FAERS Safety Report 15144418 (Version 1)
Quarter: 2018Q3

REPORT INFORMATION
  Report Type: Spontaneous
  Country: GB (occurrence: GB)
  Receive Date: 20180713
  Receipt Date: 20180713
  Transmission Date: 20181010
  Serious: Yes (Other)
  Sender: FDA-Public Use
  Company Number: GB-MYLANLABS-2018M1049824

PATIENT
  Age: 71 Year
  Sex: Female
  Weight: 84 kg

DRUGS (12)
  1. THEICAL D3 [Concomitant]
     Indication: PRODUCT USED FOR UNKNOWN INDICATION
     Dosage: 1 DF, QD
     Dates: start: 20161010
  2. PARACETAMOL [Concomitant]
     Active Substance: ACETAMINOPHEN
     Indication: PRODUCT USED FOR UNKNOWN INDICATION
     Dosage: 2 DF, QID
     Dates: start: 20120621
  3. ATORVASTATIN [Suspect]
     Active Substance: ATORVASTATIN
     Indication: PRODUCT USED FOR UNKNOWN INDICATION
  4. VENTOLIN [Concomitant]
     Active Substance: ALBUTEROL SULFATE
     Indication: PRODUCT USED FOR UNKNOWN INDICATION
     Dosage: UNK UNK, QID
     Route: 055
  5. ACIDEX                             /01521901/ [Concomitant]
     Active Substance: CALCIUM CARBONATE\SODIUM ALGINATE\SODIUM BICARBONATE
     Indication: PRODUCT USED FOR UNKNOWN INDICATION
     Dosage: 1 OR 2 TEASPOONS UP TO 4 HOURLY
     Dates: start: 20130304
  6. ALGESAL                            /00021209/ [Concomitant]
     Indication: OSTEOARTHRITIS
     Dosage: 1 DF, TID
     Dates: start: 20130304
  7. COSMOCOL [Concomitant]
     Indication: CONSTIPATION
     Dosage: 1 DF, QD
     Dates: start: 20140912, end: 20180323
  8. BENDROFLUMETHIAZIDE [Concomitant]
     Active Substance: BENDROFLUMETHIAZIDE
     Indication: JOINT SWELLING
     Dosage: 1 DF, AM
     Dates: start: 20171220
  9. FENCINO [Concomitant]
     Indication: PAIN
     Dosage: 1 DF, Q3D
     Route: 062
     Dates: start: 20180109
  10. MATRIFEN [Concomitant]
     Active Substance: FENTANYL
     Indication: PAIN
     Dosage: 1 DF, Q3D
     Route: 062
     Dates: start: 20171220, end: 20180109
  11. BUDESONIDE. [Concomitant]
     Active Substance: BUDESONIDE
     Indication: PRODUCT USED FOR UNKNOWN INDICATION
     Dosage: 4 DF, QD,PUFFS.
     Route: 055
     Dates: start: 20140721
  12. OMEPRAZOLE. [Concomitant]
     Active Substance: OMEPRAZOLE
     Indication: PRODUCT USED FOR UNKNOWN INDICATION
     Dosage: 1 DF, QD, MORNING, CAN USE IN EVENING.
     Dates: start: 20170324, end: 20180323

REACTIONS (3)
  - Myalgia [Unknown]
  - Sleep disorder [Recovered/Resolved]
  - Malaise [Unknown]

NARRATIVE: CASE EVENT DATE: 20180323
